FAERS Safety Report 21663014 (Version 1)
Quarter: 2022Q4

REPORT INFORMATION
  Report Type: Spontaneous
  Country: BR (occurrence: BR)
  Receive Date: 20221130
  Receipt Date: 20221130
  Transmission Date: 20230113
  Serious: Yes (Other)
  Sender: FDA-Public Use
  Company Number: BR-GLAXOSMITHKLINE-BR2022AMR176829

PATIENT

DRUGS (7)
  1. BENLYSTA [Suspect]
     Active Substance: BELIMUMAB
     Indication: Systemic lupus erythematosus
     Dosage: UNK, I GET 5 LITTLE BOXES I THINK IT^S THE 5 THAT SHE USES. 1.5 ML VIAL,
     Route: 042
     Dates: start: 20220803
  2. AMOXICILLIN\CLAVULANATE POTASSIUM [Suspect]
     Active Substance: AMOXICILLIN\CLAVULANATE POTASSIUM
     Indication: Sinusitis
     Dosage: UNK
  3. AMOXICILLIN [Suspect]
     Active Substance: AMOXICILLIN
     Indication: Sinusitis
     Dosage: UNK
  4. ACYCLOVIR [Suspect]
     Active Substance: ACYCLOVIR
     Indication: Infection
     Dosage: 4 DF
  5. POTASSIUM PERMANGANATE [Suspect]
     Active Substance: POTASSIUM PERMANGANATE
     Indication: Infection
     Dosage: UNK
  6. CEFTRIAXONE [Suspect]
     Active Substance: CEFTRIAXONE
     Indication: Ear congestion
     Dosage: 1 G 1 INJECTION PER DAY FOR 10 DAYS
  7. DYMISTA [Suspect]
     Active Substance: AZELASTINE HYDROCHLORIDE\FLUTICASONE PROPIONATE
     Indication: Nasal oedema
     Dosage: 1 PUFF(S), BID

REACTIONS (18)
  - Deafness [Not Recovered/Not Resolved]
  - Immunodeficiency [Unknown]
  - Tympanic membrane perforation [Not Recovered/Not Resolved]
  - Illness [Unknown]
  - Herpes virus infection [Recovered/Resolved]
  - Localised infection [Recovered/Resolved]
  - Cough [Unknown]
  - Dysphonia [Unknown]
  - Aphonia [Unknown]
  - Influenza [Unknown]
  - Sinusitis [Not Recovered/Not Resolved]
  - Productive cough [Unknown]
  - Ear discomfort [Unknown]
  - Nasal oedema [Unknown]
  - Pain in extremity [Unknown]
  - Condition aggravated [Unknown]
  - Drug ineffective [Unknown]
  - Product dose omission issue [Unknown]

NARRATIVE: CASE EVENT DATE: 20220101
